FAERS Safety Report 18850548 (Version 5)
Quarter: 2021Q2

REPORT INFORMATION
  Report Type: Spontaneous
  Country: US (occurrence: US)
  Receive Date: 20210205
  Receipt Date: 20210423
  Transmission Date: 20210717
  Serious: Yes (Hospitalization)
  Sender: FDA-Public Use
  Company Number: US-GLAXOSMITHKLINE-US2021AMR022706

PATIENT
  Age: 55 Year
  Sex: Female

DRUGS (4)
  1. ZEJULA [Suspect]
     Active Substance: NIRAPARIB
     Indication: PRODUCT USED FOR UNKNOWN INDICATION
     Dosage: 200 MG, QD
     Dates: start: 20210118, end: 20210308
  2. ZEJULA [Suspect]
     Active Substance: NIRAPARIB
     Dosage: 200 MG, QD
     Dates: end: 20210406
  3. ZEJULA [Suspect]
     Active Substance: NIRAPARIB
     Dosage: 200 MG, QD
  4. XARELTO [Concomitant]
     Active Substance: RIVAROXABAN
     Indication: PRODUCT USED FOR UNKNOWN INDICATION
     Dosage: UNK

REACTIONS (12)
  - Pelvic mass [Unknown]
  - Epistaxis [Unknown]
  - Dizziness [Not Recovered/Not Resolved]
  - Mouth haemorrhage [Unknown]
  - Asthenia [Unknown]
  - Mammoplasty [Unknown]
  - Platelet count decreased [Not Recovered/Not Resolved]
  - Seroma [Unknown]
  - Rash [Unknown]
  - Nausea [Recovered/Resolved]
  - Red blood cell count decreased [Not Recovered/Not Resolved]
  - Headache [Unknown]

NARRATIVE: CASE EVENT DATE: 20210310
